FAERS Safety Report 11535201 (Version 1)
Quarter: 2015Q3

REPORT INFORMATION
  Report Type: Spontaneous
  Country: IT (occurrence: IT)
  Receive Date: 20150922
  Receipt Date: 20150922
  Transmission Date: 20151125
  Serious: Yes (Disabling)
  Sender: FDA-Public Use
  Company Number: IT-ACTAVIS-2015-19623

PATIENT
  Age: 54 Year
  Sex: Female

DRUGS (1)
  1. CLOPIDOGREL BESYLATE [Suspect]
     Active Substance: CLOPIDOGREL BESILATE
     Indication: HYPOXIC-ISCHAEMIC ENCEPHALOPATHY
     Dosage: 1 DF, DAILY
     Route: 048
     Dates: start: 20150801, end: 20150901

REACTIONS (1)
  - Therapeutic response changed [Unknown]

NARRATIVE: CASE EVENT DATE: 20150901
